FAERS Safety Report 8109125-0 (Version None)
Quarter: 2012Q1

REPORT INFORMATION
  Report Type: 
  Country: None (occurrence: None)
  Receive Date: 20120202
  Receipt Date: 20120105
  Transmission Date: 20120608
  Serious: No
  Sender: FDA-Public Use
  Company Number: US-AMGEN-USASP2012000787

PATIENT
  Age: 52 Year
  Sex: Male

DRUGS (2)
  1. ENBREL [Suspect]
     Indication: RHEUMATOID ARTHRITIS
     Dosage: 50 MG, QWK
     Dates: start: 20060316
  2. ENBREL [Suspect]
     Dosage: 50 MG, QWK
     Dates: start: 20110101

REACTIONS (6)
  - ARTHRITIS [None]
  - MOBILITY DECREASED [None]
  - DEPRESSION [None]
  - ULCER [None]
  - GASTROINTESTINAL TRACT ADENOMA [None]
  - MALAISE [None]
